FAERS Safety Report 5327476-X (Version None)
Quarter: 2007Q2

REPORT INFORMATION
  Report Type: 
  Country: None (occurrence: None)
  Receive Date: 20070517
  Receipt Date: 20070131
  Transmission Date: 20071010
  Serious: Yes (Hospitalization)
  Sender: FDA-Public Use
  Company Number: US-JNJFOC-20070103671

PATIENT
  Age: 21 Month
  Sex: Male
  Weight: 13.61 kg

DRUGS (10)
  1. TRAMADOL HCL [Suspect]
     Indication: ACCIDENTAL EXPOSURE
     Route: 048
  2. PHENAZOPYRIDINE HCL TAB [Suspect]
     Indication: ACCIDENTAL EXPOSURE
     Route: 048
  3. ACETAMINOPHEN AND HYDROCODONE BITARTRATE [Concomitant]
     Indication: ACCIDENTAL EXPOSURE
     Route: 048
  4. SKELETAL MUSCLE RELAXANT [Concomitant]
     Indication: ACCIDENTAL EXPOSURE
     Route: 048
  5. AMPHETAMINE [Concomitant]
     Indication: ACCIDENTAL EXPOSURE
     Route: 048
  6. BUPROPION HYDROCHLORIDE [Concomitant]
     Indication: ACCIDENTAL EXPOSURE
     Route: 048
  7. COX-2-INHIBITOR [Concomitant]
     Indication: ACCIDENTAL EXPOSURE
     Route: 048
  8. ANTIBIOTIC [Concomitant]
     Indication: ACCIDENTAL EXPOSURE
     Route: 048
  9. ERYTHROMYCIN [Concomitant]
     Indication: ACCIDENTAL EXPOSURE
     Route: 048
  10. PREDNISONE TAB [Concomitant]
     Indication: ACCIDENTAL EXPOSURE
     Route: 048

REACTIONS (7)
  - ACCIDENTAL EXPOSURE [None]
  - BLOOD PRESSURE DECREASED [None]
  - CHROMATURIA [None]
  - HEART RATE INCREASED [None]
  - RHINORRHOEA [None]
  - UPPER RESPIRATORY TRACT INFECTION [None]
  - WHITE BLOOD CELL COUNT DECREASED [None]
